FAERS Safety Report 14167726 (Version 1)
Quarter: 2017Q4

REPORT INFORMATION
  Report Type: Spontaneous
  Country: JP (occurrence: JP)
  Receive Date: 20171108
  Receipt Date: 20171108
  Transmission Date: 20180321
  Serious: Yes (Other)
  Sender: FDA-Public Use
  Company Number: JP-009507513-1710JPN003501J

PATIENT

DRUGS (1)
  1. FOSAMAC TABLETS 35MG [Suspect]
     Active Substance: ALENDRONATE SODIUM
     Dosage: 35 MG, QW
     Route: 048

REACTIONS (3)
  - Dental care [Unknown]
  - Drug dose omission [Unknown]
  - Dementia [Unknown]
